FAERS Safety Report 18915127 (Version 1)
Quarter: 2021Q1

REPORT INFORMATION
  Report Type: Spontaneous
  Country: US (occurrence: US)
  Receive Date: 20210219
  Receipt Date: 20210219
  Transmission Date: 20210420
  Serious: Yes (Other)
  Sender: FDA-Public Use
  Company Number: US-009507513-2010USA001960

PATIENT
  Sex: Female
  Weight: 111.11 kg

DRUGS (11)
  1. LIPITOR [Concomitant]
     Active Substance: ATORVASTATIN CALCIUM
     Indication: HYPERLIPIDAEMIA
     Dosage: DOSAGE: 10?20 MG
     Dates: start: 2005
  2. METFORMIN [Concomitant]
     Active Substance: METFORMIN HYDROCHLORIDE
     Indication: DIABETES MELLITUS
     Dosage: DOSAGE: 1000 MG
     Dates: start: 2005
  3. PREDNISONE. [Concomitant]
     Active Substance: PREDNISONE
     Indication: BACK PAIN
     Dosage: 4 MILLIGRAM
     Dates: start: 2012
  4. LASIX [Concomitant]
     Active Substance: FUROSEMIDE
     Indication: HYPERTENSION
     Dosage: 20 MILLIGRAM
     Dates: start: 2005
  5. CRESTOR [Concomitant]
     Active Substance: ROSUVASTATIN CALCIUM
     Indication: HYPERLIPIDAEMIA
     Dosage: DOSAGE: 10?20 MG
     Dates: start: 2005
  6. ZOSTAVAX [Suspect]
     Active Substance: VARICELLA-ZOSTER VIRUS STRAIN OKA/MERCK LIVE ANTIGEN
     Indication: PROPHYLAXIS
     Route: 065
     Dates: start: 20150128
  7. COZAAR [Suspect]
     Active Substance: LOSARTAN POTASSIUM
     Indication: CARDIOMYOPATHY
     Dosage: 100 MILLIGRAM
     Route: 048
     Dates: start: 2000
  8. COZAAR [Concomitant]
     Active Substance: LOSARTAN POTASSIUM
     Indication: HYPERTENSION
     Dosage: 100 MILLIGRAM
     Route: 048
     Dates: start: 2005
  9. VITAMIN D (UNSPECIFIED) [Concomitant]
     Active Substance: VITAMIN D NOS
     Indication: VITAMIN D DEFICIENCY
     Dosage: DOSAGE: 2000 UNITS
     Dates: start: 2013
  10. CARVEDILOL. [Concomitant]
     Active Substance: CARVEDILOL
     Indication: CARDIOMYOPATHY
     Dosage: 25 MILLIGRAM
     Dates: start: 2000
  11. CYMBALTA [Concomitant]
     Active Substance: DULOXETINE HYDROCHLORIDE
     Indication: DEPRESSION
     Dosage: 60 MILLIGRAM
     Dates: start: 2000

REACTIONS (6)
  - Gout [Unknown]
  - Arthropathy [Unknown]
  - Arthritis [Unknown]
  - Herpes zoster [Not Recovered/Not Resolved]
  - Product use in unapproved indication [Unknown]
  - Cellulitis [Unknown]

NARRATIVE: CASE EVENT DATE: 2000
